FAERS Safety Report 11193623 (Version 1)
Quarter: 2015Q2

REPORT INFORMATION
  Report Type: Report from Study
  Country: US (occurrence: US)
  Receive Date: 20150616
  Receipt Date: 20150616
  Transmission Date: 20150821
  Serious: Yes (Disabling)
  Sender: FDA-Public Use
  Company Number: US-ASTRAZENECA-2015SE19103

PATIENT
  Age: 22762 Day
  Sex: Female

DRUGS (2)
  1. LYNPARZA [Suspect]
     Active Substance: OLAPARIB
     Indication: BRCA1 GENE MUTATION
     Route: 048
  2. LYNPARZA [Suspect]
     Active Substance: OLAPARIB
     Indication: OVARIAN CANCER
     Route: 048

REACTIONS (14)
  - Flatulence [Unknown]
  - Confusional state [Recovered/Resolved]
  - Anxiety [Unknown]
  - Asthenia [Unknown]
  - Decreased appetite [Recovered/Resolved]
  - Memory impairment [Recovered/Resolved]
  - Fatigue [Unknown]
  - Balance disorder [Unknown]
  - Back pain [Unknown]
  - Flushing [Unknown]
  - Depression [Unknown]
  - Headache [Recovered/Resolved]
  - Nausea [Unknown]
  - Cellulitis [Unknown]

NARRATIVE: CASE EVENT DATE: 20150223
